FAERS Safety Report 12012905 (Version 1)
Quarter: 2016Q1

REPORT INFORMATION
  Report Type: Spontaneous
  Country: FR (occurrence: FR)
  Receive Date: 20160205
  Receipt Date: 20160205
  Transmission Date: 20160526
  Serious: Yes (Hospitalization)
  Sender: FDA-Public Use
  Company Number: FR-PFIZER INC-2016050807

PATIENT
  Age: 13 Year
  Sex: Female
  Weight: 47 kg

DRUGS (7)
  1. LANVIS [Suspect]
     Active Substance: THIOGUANINE ANHYDROUS
     Dosage: 87 MG, UNK (FROM D36 TO D49)
     Route: 048
     Dates: end: 20150910
  2. ENDOXAN /00021101/ [Suspect]
     Active Substance: CYCLOPHOSPHAMIDE
     Dosage: 1450 MG, SINGLE
     Route: 042
     Dates: start: 20150828, end: 20150828
  3. METHOTREXATE BIODIM [Suspect]
     Active Substance: METHOTREXATE
     Dosage: 12 MG, UNK (ON D38 AND D45)
     Route: 037
     Dates: end: 20150906
  4. ARACYTINE [Suspect]
     Active Substance: CYTARABINE
     Dosage: 30 MG, UNK (ON D38 AND D45)
     Route: 037
     Dates: end: 20150906
  5. HYDROCORTISONE. [Suspect]
     Active Substance: HYDROCORTISONE
     Dosage: 15 MG, UNK (ON D38 AND D45)
     Route: 037
     Dates: end: 20150906
  6. CYTARABINE SANDOZ [Suspect]
     Active Substance: CYTARABINE
     Dosage: 110 MG, UNK  (ON DAY38, D39, D40, D41, D45, D46, D47, D48)
     Route: 042
     Dates: end: 20150909
  7. MESNA EG [Suspect]
     Active Substance: MESNA
     Dosage: 507.5 MG, 2X/DAY (ON D36)
     Route: 042
     Dates: end: 20150828

REACTIONS (1)
  - Febrile bone marrow aplasia [Recovered/Resolved]

NARRATIVE: CASE EVENT DATE: 20150910
